FAERS Safety Report 20875559 (Version 3)
Quarter: 2023Q2

REPORT INFORMATION
  Report Type: Spontaneous
  Country: US (occurrence: US)
  Receive Date: 20220526
  Receipt Date: 20230526
  Transmission Date: 20230722
  Serious: Yes (Other)
  Sender: FDA-Public Use
  Company Number: US-JNJFOC-20220542580

PATIENT
  Age: 3 Decade
  Sex: Female

DRUGS (1)
  1. ELMIRON [Suspect]
     Active Substance: PENTOSAN POLYSULFATE SODIUM
     Indication: Cystitis interstitial
     Dosage: VARIED FROM 300-600 MG PER DAY AND ALSO 2 EVERY MORNING (QAM) AND 1 EVERY BEDTIME (QPM).
     Route: 048
     Dates: start: 1998, end: 2020

REACTIONS (3)
  - Dry age-related macular degeneration [Recovering/Resolving]
  - Pigmentary maculopathy [Unknown]
  - Off label use [Unknown]

NARRATIVE: CASE EVENT DATE: 19980101
